FAERS Safety Report 6366103-X (Version None)
Quarter: 2009Q3

REPORT INFORMATION
  Report Type: 
  Country: None (occurrence: None)
  Receive Date: 20090920
  Receipt Date: 20090602
  Transmission Date: 20100115
  Serious: No
  Sender: FDA-Public Use
  Company Number: US-BAUSCH-2009BL002710

PATIENT
  Sex: Female

DRUGS (3)
  1. ALAWAY [Suspect]
     Indication: EYE PRURITUS
     Route: 047
     Dates: start: 20090505, end: 20090602
  2. ALAWAY [Suspect]
     Route: 047
     Dates: start: 20090505, end: 20090602
  3. TYLENOL ^JOHNSON + JOHNSON^ [Concomitant]

REACTIONS (1)
  - DRUG INEFFECTIVE [None]
